FAERS Safety Report 7915154-X (Version None)
Quarter: 2011Q4

REPORT INFORMATION
  Report Type: 
  Country: None (occurrence: None)
  Receive Date: 20111115
  Receipt Date: 20110803
  Transmission Date: 20120403
  Serious: No
  Sender: FDA-Public Use
  Company Number: US-BAYER-2011-071195

PATIENT
  Sex: Female

DRUGS (2)
  1. ALEVE (CAPLET) [Suspect]
     Dosage: 4 DF, ONCE
     Route: 048
     Dates: start: 20110803
  2. ACETAMINOPHEN [Concomitant]
     Dosage: UNK
     Dates: start: 20110803

REACTIONS (1)
  - NO ADVERSE EVENT [None]
